FAERS Safety Report 8481361-3 (Version None)
Quarter: 2012Q3

REPORT INFORMATION
  Report Type: 
  Country: None (occurrence: None)
  Receive Date: 20120702
  Receipt Date: 20120626
  Transmission Date: 20120928
  Serious: Yes (Other)
  Sender: FDA-Public Use
  Company Number: US-SHIRE-ALL1-2012-01394

PATIENT
  Sex: Female
  Weight: 66.213 kg

DRUGS (8)
  1. BENTYL [Concomitant]
     Indication: COLITIS ULCERATIVE
     Dosage: 10 MG, OTHER (Q4H OR SIX TIMES DAILY)
     Route: 048
     Dates: start: 20110101
  2. PROMETHAZINE [Concomitant]
     Indication: GASTROINTESTINAL DISORDER
     Dosage: 50 MG(TWO 25 MG), AS REQ'D EVERY 4-6 HOURS
     Route: 048
     Dates: start: 20110101
  3. ZOFRAN [Concomitant]
     Indication: ABDOMINAL SYMPTOM
     Dosage: UNK, AS REQ'D
     Route: 048
     Dates: start: 20110101
  4. TRAMADOL HCL [Concomitant]
     Indication: PAIN
     Dosage: 50 MG, 3X/DAY:TID
     Route: 048
     Dates: start: 20110101
  5. PENTASA [Suspect]
     Indication: CROHN'S DISEASE
     Dosage: 1500 MG (THREE 500 MG CAPSULES), 1X/DAY:QD
     Route: 048
     Dates: start: 20120130, end: 20120130
  6. OMEPRAZOLE [Concomitant]
     Indication: GASTROOESOPHAGEAL REFLUX DISEASE
     Dosage: 20 MG, 1X/DAY:QD
     Route: 048
     Dates: start: 20110101
  7. BUDESONIDE [Concomitant]
     Indication: PRODUCT USED FOR UNKNOWN INDICATION
     Dosage: 3 MG, UNKNOWN
     Route: 065
     Dates: start: 20120118, end: 20120118
  8. PENTASA [Suspect]
     Indication: COLITIS ULCERATIVE

REACTIONS (4)
  - NAUSEA [None]
  - BLOOD PRESSURE DECREASED [None]
  - HEADACHE [None]
  - VOMITING [None]
